FAERS Safety Report 5411750-2 (Version None)
Quarter: 2007Q3

REPORT INFORMATION
  Report Type: 
  Country: None (occurrence: None)
  Receive Date: 20070813
  Receipt Date: 20070808
  Transmission Date: 20080115
  Serious: Yes (Other)
  Sender: FDA-Public Use
  Company Number: PHNU2007DE02701

PATIENT
  Age: 69 Year
  Sex: Male
  Weight: 80 kg

DRUGS (3)
  1. ZOMETA [Suspect]
     Indication: MULTIPLE MYELOMA
     Dosage: 4 MG, QMO
     Route: 042
     Dates: start: 20030301, end: 20050301
  2. VELCADE [Suspect]
     Dosage: 3.5 MG, UNK
     Route: 065
     Dates: start: 19990101, end: 20050901
  3. RADIOTHERAPY [Suspect]
     Route: 065
     Dates: start: 19990101, end: 20050901

REACTIONS (6)
  - BIOPSY BONE ABNORMAL [None]
  - OSTEONECROSIS [None]
  - OSTEOTOMY [None]
  - SCINTIGRAPHY [None]
  - SINGLE PHOTON EMISSION COMPUTERISED TOMOGRAM ABNORMAL [None]
  - TOOTH EXTRACTION [None]
